FAERS Safety Report 4562539-8 (Version None)
Quarter: 2005Q1

REPORT INFORMATION
  Report Type: 
  Country: None (occurrence: None)
  Receive Date: 20050127
  Receipt Date: 20050117
  Transmission Date: 20050727
  Serious: Yes (Hospitalization)
  Sender: FDA-Public Use
  Company Number: JP-BRISTOL-MYERS SQUIBB COMPANY-12829172

PATIENT
  Age: 84 Year
  Sex: Male

DRUGS (1)
  1. MAXIPIME [Suspect]
     Route: 041
     Dates: start: 20041225, end: 20050110

REACTIONS (2)
  - BILE DUCT OBSTRUCTION [None]
  - HEPATIC FUNCTION ABNORMAL [None]
